FAERS Safety Report 6056464-3 (Version None)
Quarter: 2009Q1

REPORT INFORMATION
  Report Type: 
  Country: None (occurrence: None)
  Receive Date: 20090126
  Receipt Date: 20090126
  Transmission Date: 20090719
  Serious: Yes (Other)
  Sender: FDA-Public Use
  Company Number: None

PATIENT
  Sex: Female
  Weight: 47.6277 kg

DRUGS (2)
  1. FORTEO [Suspect]
     Indication: OSTEOPOROSIS
     Dosage: 1X INJ. DAILY 1X A DAY
     Dates: start: 20071001
  2. FORTEO [Suspect]
     Indication: OSTEOPOROSIS
     Dosage: 1X INJ. DAILY 1X A DAY
     Dates: start: 20081201

REACTIONS (13)
  - ABNORMAL BEHAVIOUR [None]
  - COUGH [None]
  - DIARRHOEA [None]
  - DIZZINESS [None]
  - DRY EYE [None]
  - EYE PAIN [None]
  - GAIT DISTURBANCE [None]
  - HEADACHE [None]
  - IMPAIRED DRIVING ABILITY [None]
  - INTENTIONAL SELF-INJURY [None]
  - MUSCLE SPASMS [None]
  - NECK PAIN [None]
  - PRODUCT QUALITY ISSUE [None]
